FAERS Safety Report 9168938 (Version 5)
Quarter: 2014Q2

REPORT INFORMATION
  Report Type: Report from Study
  Country: CA (occurrence: CA)
  Receive Date: 20130318
  Receipt Date: 20140623
  Transmission Date: 20141212
  Serious: Yes (Other)
  Sender: FDA-Public Use
  Company Number: CA-ROCHE-1202711

PATIENT
  Age: 59 Year
  Sex: Female
  Weight: 83.5 kg

DRUGS (15)
  1. ACTEMRA [Suspect]
     Indication: RHEUMATOID ARTHRITIS
     Route: 042
     Dates: start: 20130129, end: 20130129
  2. RITUXAN [Suspect]
     Indication: RHEUMATOID ARTHRITIS
     Dosage: LAST DOSE WAS ON 16/DEC/2013.
     Route: 042
     Dates: start: 20130513
  3. DILANTIN [Concomitant]
  4. MEDROXY [Concomitant]
  5. PREMARIN [Concomitant]
  6. FLUOXETINE [Concomitant]
  7. CELEBREX [Concomitant]
  8. PARIET [Concomitant]
  9. FAMOTIDINE [Concomitant]
  10. CYCLOSPORINE A [Concomitant]
  11. VITAMIN E [Concomitant]
  12. DIPHENHYDRAMINE HCL [Concomitant]
     Route: 048
     Dates: start: 20130513
  13. ACETAMINOPHEN [Concomitant]
     Indication: PREMEDICATION
     Route: 048
     Dates: start: 20130513
  14. METHYLPREDNISOLONE [Concomitant]
     Indication: PREMEDICATION
     Route: 042
     Dates: start: 20130513
  15. METFORMIN [Concomitant]

REACTIONS (4)
  - Pancreatitis [Unknown]
  - Infusion related reaction [Recovered/Resolved]
  - Arthralgia [Not Recovered/Not Resolved]
  - Drug effect decreased [Unknown]
